FAERS Safety Report 9233733 (Version 1)
Quarter: 2013Q2

REPORT INFORMATION
  Report Type: Report from Study
  Country: BR (occurrence: BR)
  Receive Date: 20130416
  Receipt Date: 20130416
  Transmission Date: 20140414
  Serious: Yes (Other)
  Sender: FDA-Public Use
  Company Number: PHHY2013BR035322

PATIENT
  Sex: Female

DRUGS (2)
  1. CATAFLAM [Suspect]
     Dosage: UNK UKN, UNK
  2. SIMVASTATIN [Suspect]
     Indication: BLOOD CHOLESTEROL ABNORMAL
     Dosage: UNK UKN, QD

REACTIONS (2)
  - Infarction [Recovered/Resolved]
  - Blood cholesterol increased [Recovered/Resolved]
